FAERS Safety Report 5397239-8 (Version None)
Quarter: 2007Q3

REPORT INFORMATION
  Report Type: 
  Country: None (occurrence: None)
  Receive Date: 20070725
  Receipt Date: 20070713
  Transmission Date: 20080115
  Serious: Yes (Other)
  Sender: FDA-Public Use
  Company Number: US-PFIZER INC-2007058343

PATIENT
  Sex: Female
  Weight: 97.1 kg

DRUGS (1)
  1. EXUBERA [Suspect]
     Indication: TYPE 2 DIABETES MELLITUS

REACTIONS (5)
  - ASTHENIA [None]
  - BLOOD GLUCOSE DECREASED [None]
  - BLOOD GLUCOSE INCREASED [None]
  - HYPERHIDROSIS [None]
  - PALPITATIONS [None]
